FAERS Safety Report 9626972 (Version 2)
Quarter: 2014Q1

REPORT INFORMATION
  Report Type: Spontaneous
  Country: FR (occurrence: FR)
  Receive Date: 20131016
  Receipt Date: 20140123
  Transmission Date: 20141002
  Serious: Yes (Hospitalization, Other)
  Sender: FDA-Public Use
  Company Number: PHHY2013FR116153

PATIENT
  Age: 58 Year
  Sex: Female

DRUGS (11)
  1. LEPONEX [Suspect]
     Indication: SCHIZOPHRENIA
     Dosage: UNK
     Route: 048
     Dates: start: 20130823
  2. LEPONEX [Suspect]
     Dosage: 275 MG, PER DAY
  3. LEPONEX [Suspect]
     Dosage: 350 MG, PER DAY
  4. LEPONEX [Suspect]
     Dosage: 200 MG, PER DAY
  5. TROPATEPINE [Suspect]
     Dosage: 15 MG, QD
  6. TROPATEPINE [Suspect]
     Dosage: 30 MG, PER DAY
  7. TROPATEPINE [Suspect]
     Dosage: 10 MG, PER DAY
  8. ARIPIPRAZOLE [Concomitant]
     Dosage: 10 MG, QD
  9. BUDESONIDE W/FORMOTEROL FUMARATE [Concomitant]
     Indication: CHRONIC OBSTRUCTIVE PULMONARY DISEASE
     Dosage: 400/12 MCG QD
  10. ZOPICLONE [Concomitant]
     Dosage: 7.5 MG, QD
  11. LORAZEPAM [Concomitant]
     Dosage: 7.5 MG, QD

REACTIONS (13)
  - Oesophagitis [Recovered/Resolved]
  - Hiatus hernia [Unknown]
  - Haematemesis [Unknown]
  - Vomiting [Unknown]
  - Nausea [Unknown]
  - Abdominal pain [Unknown]
  - Abdominal pain upper [Unknown]
  - Speech disorder [Unknown]
  - Orthostatic hypotension [Unknown]
  - Constipation [Unknown]
  - Headache [Unknown]
  - Antipsychotic drug level increased [Unknown]
  - Antipsychotic drug level decreased [Unknown]
